FAERS Safety Report 4857691-0 (Version None)
Quarter: 2005Q4

REPORT INFORMATION
  Report Type: 
  Country: None (occurrence: None)
  Receive Date: 20051219
  Receipt Date: 20050609
  Transmission Date: 20060501
  Serious: No
  Sender: FDA-Public Use
  Company Number: US-GLAXOSMITHKLINE-A0561956A

PATIENT
  Age: 67 Year

DRUGS (1)
  1. EQUATE NTS 14MG [Suspect]

REACTIONS (8)
  - ANXIETY [None]
  - BALANCE DISORDER [None]
  - DIZZINESS [None]
  - FEELING ABNORMAL [None]
  - HEART RATE INCREASED [None]
  - IRRITABILITY [None]
  - NERVOUSNESS [None]
  - TREMOR [None]
